FAERS Safety Report 17847954 (Version 3)
Quarter: 2020Q2

REPORT INFORMATION
  Report Type: Spontaneous
  Country: US (occurrence: US)
  Receive Date: 20200601
  Receipt Date: 20200615
  Transmission Date: 20200714
  Serious: Yes (Hospitalization)
  Sender: FDA-Public Use
  Company Number: US-SEATTLE GENETICS-2020SGN02184

PATIENT
  Age: 37 Year
  Sex: Female

DRUGS (3)
  1. TUKYSA [Suspect]
     Active Substance: TUCATINIB
     Indication: BREAST CANCER FEMALE
     Dosage: UNK UNK, BID
  2. CAPECITABINE. [Concomitant]
     Active Substance: CAPECITABINE
     Indication: BREAST CANCER FEMALE
  3. HERCEPTIN [Concomitant]
     Active Substance: TRASTUZUMAB
     Indication: BREAST CANCER FEMALE

REACTIONS (26)
  - Fatigue [Not Recovered/Not Resolved]
  - Memory impairment [Unknown]
  - Nausea [Recovering/Resolving]
  - Infection [Unknown]
  - Dehydration [Unknown]
  - Decreased appetite [Unknown]
  - Fall [Unknown]
  - Vomiting [Not Recovered/Not Resolved]
  - Device material issue [Unknown]
  - Heart rate increased [Unknown]
  - Dental care [Unknown]
  - Feeling hot [Unknown]
  - Headache [Unknown]
  - Diarrhoea [Not Recovered/Not Resolved]
  - Weight decreased [Recovering/Resolving]
  - Bone pain [Unknown]
  - Bedridden [Unknown]
  - Product dose omission [Unknown]
  - Pain [Unknown]
  - Coordination abnormal [Unknown]
  - Balance disorder [Unknown]
  - Otorrhoea [Unknown]
  - Hypertension [Unknown]
  - Muscle spasms [Unknown]
  - Dyspepsia [Unknown]
  - Catheter site discharge [Unknown]

NARRATIVE: CASE EVENT DATE: 20200522
